FAERS Safety Report 18048306 (Version 4)
Quarter: 2024Q4

REPORT INFORMATION
  Report Type: Spontaneous
  Country: DE (occurrence: DE)
  Receive Date: 20200721
  Receipt Date: 20241118
  Transmission Date: 20250115
  Serious: Yes (Hospitalization, Other)
  Sender: MYLAN
  Company Number: DE-SA-2020SA172061

PATIENT
  Age: 62 Year
  Sex: Male

DRUGS (15)
  1. MYCOPHENOLATE MOFETIL [Suspect]
     Active Substance: MYCOPHENOLATE MOFETIL
     Indication: Immunosuppression
     Dosage: 500 MILLIGRAM, BID (12 HOURS)
     Route: 065
     Dates: start: 201911
  2. MYCOPHENOLATE MOFETIL [Suspect]
     Active Substance: MYCOPHENOLATE MOFETIL
     Indication: Immunosuppressant drug therapy
     Dosage: 500 MG, BID (12 HOURS)
     Route: 065
     Dates: start: 201911
  3. CYCLOSPORINE [Suspect]
     Active Substance: CYCLOSPORINE
     Indication: Immunosuppression
     Dosage: UNK TARGET RANGE 135 ? 30 NG / ML
     Route: 065
     Dates: start: 201911
  4. CYCLOSPORINE [Suspect]
     Active Substance: CYCLOSPORINE
     Indication: Immunosuppressant drug therapy
     Dosage: TARGET RANGE 135 +/- 30 NG/ML
     Route: 065
     Dates: start: 201911
  5. PREDNISONE [Suspect]
     Active Substance: PREDNISONE
     Indication: Immunosuppression
     Dosage: 10 MILLIGRAM, QD
     Route: 065
     Dates: start: 201911
  6. PREDNISONE [Suspect]
     Active Substance: PREDNISONE
     Indication: Immunosuppressant drug therapy
     Dosage: 50 MILLIGRAM
     Route: 065
     Dates: start: 202003, end: 202003
  7. PREDNISONE [Suspect]
     Active Substance: PREDNISONE
     Indication: Gout
     Dosage: 25 MILLIGRAM
     Route: 065
     Dates: start: 202003, end: 202003
  8. PREDNISONE [Suspect]
     Active Substance: PREDNISONE
     Dosage: 25 MG
     Dates: start: 202003
  9. HYDROXYCHLOROQUINE [Suspect]
     Active Substance: HYDROXYCHLOROQUINE
     Indication: COVID-19
     Dosage: 200 MILLIGRAM, BID (RECEIVED TILL DAY 14)
     Route: 065
     Dates: start: 20200320, end: 20200326
  10. HYDROXYCHLOROQUINE [Suspect]
     Active Substance: HYDROXYCHLOROQUINE
     Indication: Product use in unapproved indication
     Dosage: 400 MILLIGRAM, BID (LOADING DOSE FROM DAY 7)
     Route: 065
     Dates: start: 20200319, end: 20200319
  11. HYDROXYCHLOROQUINE [Suspect]
     Active Substance: HYDROXYCHLOROQUINE
     Indication: Nosocomial infection
  12. GANCICLOVIR [Concomitant]
     Active Substance: GANCICLOVIR
     Indication: Antiviral prophylaxis
     Dosage: UNK
     Route: 065
  13. VALGANCICLOVIR [Concomitant]
     Active Substance: VALGANCICLOVIR
     Indication: Prophylaxis
     Dosage: UNK
     Route: 065
     Dates: start: 2020
  14. VALGANCICLOVIR [Concomitant]
     Active Substance: VALGANCICLOVIR
     Indication: Antiviral prophylaxis
  15. COTRIMOXAZOLE [Concomitant]
     Active Substance: SULFAMETHOXAZOLE\TRIMETHOPRIM
     Indication: Prophylaxis
     Dosage: UNK
     Route: 065
     Dates: start: 201911

REACTIONS (13)
  - COVID-19 [Unknown]
  - Oropharyngeal pain [Unknown]
  - Exercise tolerance decreased [Unknown]
  - Rhinorrhoea [Unknown]
  - Tachycardia [Unknown]
  - Pyrexia [Unknown]
  - Nosocomial infection [Not Recovered/Not Resolved]
  - Cardiac infection [Not Recovered/Not Resolved]
  - SARS-CoV-2 test positive [Not Recovered/Not Resolved]
  - Lymphopenia [Unknown]
  - Leukopenia [Not Recovered/Not Resolved]
  - Anaemia [Recovering/Resolving]
  - Off label use [Unknown]

NARRATIVE: CASE EVENT DATE: 20200313
